FAERS Safety Report 9502208 (Version 1)
Quarter: 2013Q3

REPORT INFORMATION
  Report Type: Spontaneous
  Country: DE (occurrence: DE)
  Receive Date: 20130906
  Receipt Date: 20130906
  Transmission Date: 20140515
  Serious: Yes (Hospitalization, Other)
  Sender: FDA-Public Use
  Company Number: DE-AMGEN-DEUSP2013061888

PATIENT
  Sex: Female
  Weight: 67 kg

DRUGS (8)
  1. XGEVA [Suspect]
     Indication: PRODUCT USED FOR UNKNOWN INDICATION
     Dosage: 120 MG, Q4WK
     Route: 065
     Dates: start: 201110, end: 201303
  2. AFINITOR [Concomitant]
     Indication: BREAST CANCER METASTATIC
     Dosage: 10 MG, QD
     Route: 065
     Dates: start: 20130124, end: 20130507
  3. EXEMESTANE [Concomitant]
     Dosage: UNK
     Dates: start: 20130124
  4. BISOPROLOL [Concomitant]
     Dosage: UNK
     Route: 065
     Dates: start: 201302
  5. TORASEMIDE [Concomitant]
     Dosage: UNK
     Route: 065
     Dates: start: 201302
  6. DEKRISTOL [Concomitant]
     Dosage: UNK
     Route: 065
     Dates: start: 201302
  7. IBUPROFEN [Concomitant]
     Dosage: UNK
     Route: 065
     Dates: start: 201302
  8. PANTOZOL                           /01263204/ [Concomitant]
     Dosage: UNK
     Route: 065
     Dates: start: 201302

REACTIONS (2)
  - Tooth disorder [Recovered/Resolved]
  - Breast cancer metastatic [Unknown]
